FAERS Safety Report 18648250 (Version 2)
Quarter: 2021Q3

REPORT INFORMATION
  Report Type: Report from Study
  Country: CA (occurrence: CA)
  Receive Date: 20201222
  Receipt Date: 20210727
  Transmission Date: 20211014
  Serious: Yes (Other)
  Sender: FDA-Public Use
  Company Number: CA-JNJFOC-20201236157

PATIENT
  Age: 55 Year
  Sex: Male

DRUGS (2)
  1. STELARA [Suspect]
     Active Substance: USTEKINUMAB
     Dosage: THEN RESUME TO 90 MG Q. 8 WEEKS SC
     Route: 042
  2. STELARA [Suspect]
     Active Substance: USTEKINUMAB
     Indication: CROHN^S DISEASE
     Dosage: ALSO RECEIVED ON 13?NOV?2017
     Route: 058
     Dates: start: 20140326

REACTIONS (3)
  - Off label use [Unknown]
  - Bladder cancer [Not Recovered/Not Resolved]
  - Product use issue [Unknown]
